FAERS Safety Report 14182785 (Version 1)
Quarter: 2017Q4

REPORT INFORMATION
  Report Type: Spontaneous
  Country: CA (occurrence: CA)
  Receive Date: 20171113
  Receipt Date: 20171113
  Transmission Date: 20180321
  Serious: Yes (Other)
  Sender: FDA-Public Use
  Company Number: CA-AMGEN-CANSP2017170089

PATIENT
  Age: 17 Year
  Sex: Female
  Weight: 41.5 kg

DRUGS (4)
  1. TRAMADOL. [Concomitant]
     Active Substance: TRAMADOL
     Dosage: 50 MG, AS NECESSARY
  2. ENBREL [Suspect]
     Active Substance: ETANERCEPT
     Indication: PRODUCT USED FOR UNKNOWN INDICATION
     Dosage: 17.5 MG, 2 TIMES/WK
     Route: 065
     Dates: start: 201405, end: 201408
  3. PREDNISONE. [Concomitant]
     Active Substance: PREDNISONE
     Dosage: 7.5 MG, QD
     Route: 048
  4. AMLODIPINE [Concomitant]
     Active Substance: AMLODIPINE BESYLATE
     Dosage: 7.5 MG, QD

REACTIONS (7)
  - Joint destruction [Unknown]
  - Bone density decreased [Unknown]
  - Hip arthroplasty [Unknown]
  - Hypertension [Unknown]
  - Drug effect incomplete [Unknown]
  - Toxicity to various agents [Unknown]
  - Growth retardation [Unknown]

NARRATIVE: CASE EVENT DATE: 201706
